FAERS Safety Report 22291353 (Version 1)
Quarter: 2023Q2

REPORT INFORMATION
  Report Type: Spontaneous
  Country: AU (occurrence: AU)
  Receive Date: 20230506
  Receipt Date: 20230506
  Transmission Date: 20230721
  Serious: Yes (Other)
  Sender: FDA-Public Use
  Company Number: AU-TEVA-2023-AU-2883869

PATIENT

DRUGS (6)
  1. NUVIGIL [Suspect]
     Active Substance: ARMODAFINIL
     Indication: Product used for unknown indication
     Dosage: 250 MG
     Route: 065
  2. NUVIGIL [Suspect]
     Active Substance: ARMODAFINIL
     Dosage: 375 MG
     Route: 065
  3. MODAFINIL [Suspect]
     Active Substance: MODAFINIL
     Indication: Product used for unknown indication
     Route: 065
  4. DULOXETINE [Concomitant]
     Active Substance: DULOXETINE
     Indication: Product used for unknown indication
     Dosage: 60 MG
  5. LATUDA [Concomitant]
     Active Substance: LURASIDONE HYDROCHLORIDE
     Indication: Product used for unknown indication
     Dosage: 160 MG
  6. LATUDA [Concomitant]
     Active Substance: LURASIDONE HYDROCHLORIDE
     Dosage: 80 MG

REACTIONS (4)
  - Apathy [Not Recovered/Not Resolved]
  - Schizophrenia [Not Recovered/Not Resolved]
  - Therapeutic product effect incomplete [Unknown]
  - Overdose [Unknown]
